FAERS Safety Report 4398268-3 (Version None)
Quarter: 2004Q3

REPORT INFORMATION
  Report Type: 
  Country: None (occurrence: None)
  Receive Date: 20040712
  Receipt Date: 20040625
  Transmission Date: 20050211
  Serious: Yes (Hospitalization)
  Sender: FDA-Public Use
  Company Number: 200137

PATIENT
  Age: 45 Year
  Sex: Female
  Weight: 63 kg

DRUGS (6)
  1. HERCEPTIN [Suspect]
     Indication: BREAST CANCER
     Dosage: SEE IMAGE INTRAVENOUS
     Route: 042
     Dates: start: 20020404, end: 20020404
  2. HERCEPTIN [Suspect]
     Indication: BREAST CANCER
     Dosage: SEE IMAGE INTRAVENOUS
     Route: 042
     Dates: start: 20020411, end: 20020515
  3. HERCEPTIN [Suspect]
     Indication: BREAST CANCER
     Dosage: SEE IMAGE INTRAVENOUS
     Route: 042
     Dates: start: 20020828, end: 20030423
  4. DOCETAXEL (DOCETAXEL) [Suspect]
     Indication: BREAST CANCER
     Dosage: 150 MG, Q3W, INTRAVENOUS
     Route: 042
     Dates: start: 20020406, end: 20020920
  5. DEXAMETHASONE [Concomitant]
  6. PIPERACILLIN (PIPERACILLIN SODIUM) [Concomitant]

REACTIONS (5)
  - CONDITION AGGRAVATED [None]
  - DRUG HYPERSENSITIVITY [None]
  - FEBRILE NEUTROPENIA [None]
  - PHOTOSENSITIVE RASH [None]
  - PLEURAL EFFUSION [None]
